FAERS Safety Report 6087336-6 (Version None)
Quarter: 2009Q1

REPORT INFORMATION
  Report Type: 
  Country: None (occurrence: None)
  Receive Date: 20090223
  Receipt Date: 20090216
  Transmission Date: 20090719
  Serious: Yes (Other)
  Sender: FDA-Public Use
  Company Number: B0555905A

PATIENT
  Age: 15 Year
  Sex: Male
  Weight: 75 kg

DRUGS (4)
  1. RELENZA [Suspect]
     Indication: INFLUENZA
     Dosage: 10MG TWICE PER DAY
     Route: 055
     Dates: start: 20090119, end: 20090119
  2. ALPINY [Suspect]
     Dosage: 200MG UNKNOWN
     Route: 054
     Dates: start: 20090119, end: 20090119
  3. CALONAL [Concomitant]
     Indication: HYPERTHERMIA
     Dosage: 900MG PER DAY
     Route: 048
     Dates: start: 20090119, end: 20090119
  4. TAMIFLU [Concomitant]

REACTIONS (2)
  - ABNORMAL BEHAVIOUR [None]
  - MEMORY IMPAIRMENT [None]
